FAERS Safety Report 4407172-3 (Version None)
Quarter: 2004Q3

REPORT INFORMATION
  Report Type: 
  Country: None (occurrence: None)
  Receive Date: 20040721
  Receipt Date: 20040707
  Transmission Date: 20050211
  Serious: Yes (Hospitalization, Other)
  Sender: FDA-Public Use
  Company Number: USA040464857

PATIENT
  Age: 66 Year
  Sex: Female

DRUGS (10)
  1. FORTEO [Suspect]
     Indication: OSTEOPOROSIS
     Dates: start: 20040401
  2. PLAQUENIL [Suspect]
  3. SYNTHROID [Concomitant]
  4. DYAZIDE [Concomitant]
  5. ZOLOFT [Concomitant]
  6. EFFEXOR [Concomitant]
  7. PRILOSEC [Concomitant]
  8. CALCIUM [Concomitant]
  9. LISINOPRIL [Concomitant]
  10. ZANTAC [Concomitant]

REACTIONS (13)
  - ACTIVITIES OF DAILY LIVING IMPAIRED [None]
  - ASTHENIA [None]
  - BACK PAIN [None]
  - CHEST PAIN [None]
  - CHOLELITHIASIS [None]
  - COMPRESSION FRACTURE [None]
  - FATIGUE [None]
  - INTERVERTEBRAL DISC DEGENERATION [None]
  - PAIN IN EXTREMITY [None]
  - PARALYSIS [None]
  - PHARMACEUTICAL PRODUCT COMPLAINT [None]
  - UPPER LIMB FRACTURE [None]
  - URINARY TRACT INFECTION [None]
